FAERS Safety Report 6637354-1 (Version None)
Quarter: 2010Q1

REPORT INFORMATION
  Report Type: 
  Country: None (occurrence: None)
  Receive Date: 20100311
  Receipt Date: 20100302
  Transmission Date: 20100710
  Serious: Yes (Other)
  Sender: FDA-Public Use
  Company Number: 2010SP007657

PATIENT
  Age: 36 Year
  Sex: Female

DRUGS (5)
  1. NUVARING [Suspect]
     Indication: CONTRACEPTION
     Dates: start: 20050101
  2. ZITHROMAX [Suspect]
     Indication: RESPIRATORY TRACT INFECTION
  3. SALAZOPYRIN [Concomitant]
  4. CORTICOSTEROIDS [Concomitant]
  5. BRICANYL [Concomitant]

REACTIONS (5)
  - DRUG EXPOSURE DURING PREGNANCY [None]
  - PREGNANCY WITH CONTRACEPTIVE DEVICE [None]
  - PREMATURE SEPARATION OF PLACENTA [None]
  - RESPIRATORY TRACT INFECTION [None]
  - VAGINAL HAEMORRHAGE [None]
